FAERS Safety Report 16818614 (Version 3)
Quarter: 2020Q4

REPORT INFORMATION
  Report Type: Report from Study
  Country: None (occurrence: CA)
  Receive Date: 20190917
  Receipt Date: 20201208
  Transmission Date: 20210113
  Serious: Yes (Other)
  Sender: FDA-Public Use
  Company Number: CA-ABBVIE-19K-028-2927914-00

PATIENT
  Age: 63 Year
  Sex: Female

DRUGS (2)
  1. HUMIRA [Suspect]
     Active Substance: ADALIMUMAB
     Indication: HIDRADENITIS
     Route: 058
     Dates: start: 20170419, end: 2020
  2. HUMIRA [Suspect]
     Active Substance: ADALIMUMAB
     Route: 058
     Dates: start: 20201126

REACTIONS (5)
  - Hidradenitis [Unknown]
  - Feeling abnormal [Unknown]
  - Skin lesion [Unknown]
  - Dialysis [Unknown]
  - Dialysis related complication [Unknown]

NARRATIVE: CASE EVENT DATE: 2020
